FAERS Safety Report 8312554-3 (Version None)
Quarter: 2012Q2

REPORT INFORMATION
  Report Type: 
  Country: None (occurrence: None)
  Receive Date: 20120426
  Receipt Date: 20120409
  Transmission Date: 20120825
  Serious: Yes (Hospitalization)
  Sender: FDA-Public Use
  Company Number: PHHY2012JP032822

PATIENT
  Age: 71 Year
  Sex: Female

DRUGS (4)
  1. PREDNISOLONE [Concomitant]
     Dosage: 7.5 MG/DAY
     Route: 048
  2. PREDNISOLONE [Concomitant]
     Dosage: 10 MG/DAY
     Route: 042
  3. PREDNISOLONE [Concomitant]
     Indication: IDIOPATHIC THROMBOCYTOPENIC PURPURA
     Dosage: 7.5 MG/DAY
  4. CYCLOSPORINE [Suspect]
     Indication: IDIOPATHIC THROMBOCYTOPENIC PURPURA
     Dosage: 100 MG/DAY

REACTIONS (14)
  - MUSCLE ATROPHY [None]
  - PULMONARY CONGESTION [None]
  - LYMPHOCYTIC INFILTRATION [None]
  - GAIT DISTURBANCE [None]
  - PYREXIA [None]
  - DYSPNOEA [None]
  - CARDIAC FAILURE [None]
  - CARDIAC INDEX INCREASED [None]
  - ULCER [None]
  - HAEMORRHAGE [None]
  - ABSCESS [None]
  - BRAIN NATRIURETIC PEPTIDE INCREASED [None]
  - ENDOCARDITIS STAPHYLOCOCCAL [None]
  - MITRAL VALVE INCOMPETENCE [None]
